FAERS Safety Report 8301597 (Version 4)
Quarter: 2013Q2

REPORT INFORMATION
  Report Type: Spontaneous
  Country: US (occurrence: US)
  Receive Date: 20111220
  Receipt Date: 20130423
  Transmission Date: 20140414
  Serious: No
  Sender: FDA-Public Use
  Company Number: US-BIOGENIDEC-2011BI047431

PATIENT
  Age: 57 Year
  Sex: Female

DRUGS (2)
  1. TYSABRI [Suspect]
     Indication: MULTIPLE SCLEROSIS
     Route: 042
     Dates: start: 20071109, end: 20130130
  2. AMPYRA [Concomitant]
     Indication: GAIT DISTURBANCE
     Dates: start: 2011, end: 2011

REACTIONS (2)
  - Central nervous system lesion [Unknown]
  - Herpes zoster [Not Recovered/Not Resolved]
